FAERS Safety Report 16576869 (Version 2)
Quarter: 2019Q3

REPORT INFORMATION
  Report Type: Report from Study
  Country: None (occurrence: US)
  Receive Date: 20190716
  Receipt Date: 20190727
  Transmission Date: 20191004
  Serious: Yes (Hospitalization, Other)
  Sender: FDA-Public Use
  Company Number: US-ABBVIE-19K-163-2836895-00

PATIENT
  Age: 69 Year
  Sex: Female
  Weight: 85.81 kg

DRUGS (4)
  1. HUMIRA [Suspect]
     Active Substance: ADALIMUMAB
     Indication: PSORIATIC ARTHROPATHY
     Route: 058
     Dates: start: 201709
  2. HUMIRA [Suspect]
     Active Substance: ADALIMUMAB
     Indication: PSORIATIC ARTHROPATHY
     Route: 058
  3. MYRBETRIQ [Concomitant]
     Active Substance: MIRABEGRON
     Indication: CYSTITIS INTERSTITIAL
  4. METOPROLOL. [Concomitant]
     Active Substance: METOPROLOL
     Indication: HEART RATE INCREASED

REACTIONS (4)
  - Bladder disorder [Unknown]
  - Injection site pain [Recovered/Resolved]
  - Spinal stenosis [Unknown]
  - Overweight [Recovered/Resolved]

NARRATIVE: CASE EVENT DATE: 201702
